FAERS Safety Report 24449826 (Version 2)
Quarter: 2024Q4

REPORT INFORMATION
  Report Type: Spontaneous
  Country: IL (occurrence: IL)
  Receive Date: 20241017
  Receipt Date: 20241107
  Transmission Date: 20250115
  Serious: Yes (Other)
  Sender: PFIZER
  Company Number: IL-PFIZER INC-2019499296

PATIENT
  Age: 62 Year
  Sex: Female

DRUGS (26)
  1. ELELYSO [Suspect]
     Active Substance: TALIGLUCERASE ALFA
     Indication: Gaucher^s disease
     Dosage: TWICE A MONTH (2X/MONTH)
     Route: 042
     Dates: start: 20171109, end: 20171109
  2. ELELYSO [Suspect]
     Active Substance: TALIGLUCERASE ALFA
     Dosage: 2X/MONTH
     Route: 042
  3. ELELYSO [Suspect]
     Active Substance: TALIGLUCERASE ALFA
     Dosage: 2X/MONTH
     Route: 042
  4. ELELYSO [Suspect]
     Active Substance: TALIGLUCERASE ALFA
     Dosage: 2X/MONTH
     Route: 042
  5. ELELYSO [Suspect]
     Active Substance: TALIGLUCERASE ALFA
     Dosage: 2X/MONTH
     Route: 042
  6. ELELYSO [Suspect]
     Active Substance: TALIGLUCERASE ALFA
     Dosage: 2X/MONTH
     Route: 042
  7. ELELYSO [Suspect]
     Active Substance: TALIGLUCERASE ALFA
     Dosage: 2X/MONTH
     Route: 042
  8. ELELYSO [Suspect]
     Active Substance: TALIGLUCERASE ALFA
     Dosage: 2X/MONTH, CENTRAL LINE
     Route: 042
  9. ELELYSO [Suspect]
     Active Substance: TALIGLUCERASE ALFA
     Dosage: 2X/MONTH, CENTRAL LINE
     Route: 042
     Dates: start: 20230308, end: 20230308
  10. ELELYSO [Suspect]
     Active Substance: TALIGLUCERASE ALFA
     Dosage: 2X/MONTH
     Route: 042
     Dates: start: 20230330
  11. ELELYSO [Suspect]
     Active Substance: TALIGLUCERASE ALFA
     Dosage: 2X/MONTH
     Route: 042
     Dates: start: 20230515, end: 20230515
  12. ELELYSO [Suspect]
     Active Substance: TALIGLUCERASE ALFA
     Dosage: 2X/MONTH
     Route: 042
     Dates: start: 20230608, end: 20230608
  13. ELELYSO [Suspect]
     Active Substance: TALIGLUCERASE ALFA
     Dosage: 2X/MONTH
     Route: 042
     Dates: start: 20230720
  14. ELELYSO [Suspect]
     Active Substance: TALIGLUCERASE ALFA
     Dosage: 2X/MONTH
     Route: 042
     Dates: start: 20230810
  15. ELELYSO [Suspect]
     Active Substance: TALIGLUCERASE ALFA
     Dosage: 2X/MONTH
     Route: 042
     Dates: start: 20230921, end: 20230921
  16. ELELYSO [Suspect]
     Active Substance: TALIGLUCERASE ALFA
     Dosage: 2X/MONTH
     Route: 042
     Dates: start: 20231026
  17. ELELYSO [Suspect]
     Active Substance: TALIGLUCERASE ALFA
     Dosage: 2X/MONTH
     Route: 042
  18. ELELYSO [Suspect]
     Active Substance: TALIGLUCERASE ALFA
     Dosage: 2X/MONTH
     Route: 042
     Dates: start: 20240215, end: 20240215
  19. ELELYSO [Suspect]
     Active Substance: TALIGLUCERASE ALFA
     Dosage: 2X/MONTH
     Route: 042
     Dates: start: 20240314, end: 20240314
  20. ELELYSO [Suspect]
     Active Substance: TALIGLUCERASE ALFA
     Dosage: 2X/MONTH
     Route: 042
     Dates: start: 20240430
  21. ELELYSO [Suspect]
     Active Substance: TALIGLUCERASE ALFA
     Dosage: 2X/MONTH
     Route: 042
     Dates: start: 20240515
  22. ELELYSO [Suspect]
     Active Substance: TALIGLUCERASE ALFA
     Dosage: 2X/MONTH
     Route: 042
     Dates: start: 20240530
  23. ELELYSO [Suspect]
     Active Substance: TALIGLUCERASE ALFA
     Dosage: 2X/MONTH
     Route: 042
     Dates: start: 20240815
  24. ELELYSO [Suspect]
     Active Substance: TALIGLUCERASE ALFA
     Dosage: 2X/MONTH
     Route: 042
     Dates: start: 20240929
  25. ELELYSO [Suspect]
     Active Substance: TALIGLUCERASE ALFA
     Dosage: 2X/MONTH
     Route: 042
     Dates: start: 20241014, end: 20241014
  26. ELELYSO [Suspect]
     Active Substance: TALIGLUCERASE ALFA
     Dosage: 2X/MONTH
     Route: 042
     Dates: start: 20241031

REACTIONS (8)
  - Cataract [Unknown]
  - Intracranial calcification [Unknown]
  - COVID-19 [Recovered/Resolved]
  - Nasopharyngitis [Unknown]
  - Vertigo [Recovered/Resolved]
  - Arthralgia [Unknown]
  - Fatigue [Recovering/Resolving]
  - Inappropriate schedule of product administration [Unknown]

NARRATIVE: CASE EVENT DATE: 20220626
